FAERS Safety Report 4359041-5 (Version None)
Quarter: 2004Q2

REPORT INFORMATION
  Report Type: 
  Country: None (occurrence: None)
  Receive Date: 20040517
  Receipt Date: 20040506
  Transmission Date: 20050107
  Serious: Yes (Other)
  Sender: FDA-Public Use
  Company Number: GB-GLAXOSMITHKLINE-B0332107A

PATIENT
  Sex: Male

DRUGS (5)
  1. AVANDAMET [Suspect]
     Route: 048
     Dates: start: 20040420, end: 20040422
  2. DOXAZOSIN [Concomitant]
     Dosage: 4MG PER DAY
     Route: 048
  3. AMITRIPTYLINE HCL [Concomitant]
     Dosage: 10MG AT NIGHT
     Route: 048
  4. PERINDOPRIL [Concomitant]
     Dosage: 4MG PER DAY
     Route: 048
  5. BENDROFLUAZIDE [Concomitant]
     Route: 048

REACTIONS (4)
  - BLOOD GLUCOSE INCREASED [None]
  - DRUG INEFFECTIVE [None]
  - HYPERGLYCAEMIC HYPEROSMOLAR NONKETOTIC SYNDROME [None]
  - MEDICATION ERROR [None]
